FAERS Safety Report 18119569 (Version 1)
Quarter: 2020Q3

REPORT INFORMATION
  Report Type: Spontaneous
  Country: US (occurrence: US)
  Receive Date: 20200806
  Receipt Date: 20200806
  Transmission Date: 20201103
  Serious: Yes (Other)
  Sender: FDA-Public Use
  Company Number: US-BAYER-2020-158426

PATIENT
  Age: 69 Year
  Sex: Female

DRUGS (1)
  1. BAYER LOW DOSE [Suspect]
     Active Substance: ASPIRIN
     Dosage: UNK

REACTIONS (2)
  - Post-traumatic stress disorder [Unknown]
  - Phaeochromocytoma [Unknown]
